FAERS Safety Report 16570678 (Version 1)
Quarter: 2019Q3

REPORT INFORMATION
  Report Type: Spontaneous
  Country: CN (occurrence: CN)
  Receive Date: 20190715
  Receipt Date: 20190715
  Transmission Date: 20191004
  Serious: Yes (Hospitalization, Other)
  Sender: FDA-Public Use
  Company Number: CN-GLAXOSMITHKLINE-CN2019APC106778

PATIENT

DRUGS (3)
  1. SODIUM CHLORIDE 0.9% [Concomitant]
     Active Substance: SODIUM CHLORIDE
     Indication: PRODUCT USED FOR UNKNOWN INDICATION
     Dosage: 250 ML
  2. CEFUROXIME SODIUM. [Suspect]
     Active Substance: CEFUROXIME SODIUM
     Indication: PREOPERATIVE CARE
     Dosage: 3.0 G / STARTING DRIP RATE OF 40 DRIPS/MIN
     Route: 042
     Dates: start: 20110107
  3. CEFUROXIME SODIUM. [Suspect]
     Active Substance: CEFUROXIME SODIUM
     Dosage: DRIP RATE OF 60 DRIPS/MIN
     Route: 042
     Dates: start: 20110107

REACTIONS (12)
  - Anaphylactic shock [Recovered/Resolved]
  - Palpitations [Recovered/Resolved]
  - Electrocardiogram abnormal [Recovered/Resolved]
  - Cyanosis [Recovered/Resolved]
  - Cardio-respiratory arrest [Recovered/Resolved]
  - Sensory disturbance [Recovered/Resolved]
  - Rash [Recovered/Resolved]
  - Chest discomfort [Recovered/Resolved]
  - Seizure [Recovered/Resolved]
  - Loss of consciousness [Recovered/Resolved]
  - Erythema [Recovered/Resolved]
  - Pulse absent [Recovered/Resolved]

NARRATIVE: CASE EVENT DATE: 20110107
